FAERS Safety Report 10249148 (Version 1)
Quarter: 2014Q2

REPORT INFORMATION
  Report Type: Spontaneous
  Country: US (occurrence: None)
  Receive Date: 20140619
  Receipt Date: 20140619
  Transmission Date: 20141212
  Serious: Yes (Other)
  Sender: FDA-Public Use
  Company Number: None

PATIENT
  Age: 21 Year
  Sex: Female
  Weight: 59.88 kg

DRUGS (1)
  1. APLISOL [Suspect]
     Indication: TUBERCULOSIS
     Dosage: 0.1 ML  ONCE  GIVEN INTO/UNDER THE SKIN
     Route: 058
     Dates: start: 20140609, end: 20140618

REACTIONS (2)
  - Injection site rash [None]
  - Rash [None]
